FAERS Safety Report 12430063 (Version 2)
Quarter: 2016Q2

REPORT INFORMATION
  Report Type: Spontaneous
  Country: US (occurrence: US)
  Receive Date: 20160602
  Receipt Date: 20160609
  Transmission Date: 20160815
  Serious: Yes (Hospitalization, Other)
  Sender: FDA-Public Use
  Company Number: US-FRI-1000085166

PATIENT
  Age: 76 Year
  Sex: Female

DRUGS (7)
  1. PRILOSEC [Concomitant]
     Active Substance: OMEPRAZOLE MAGNESIUM
     Indication: GASTROINTESTINAL DISORDER
  2. LINZESS [Suspect]
     Active Substance: LINACLOTIDE
     Indication: IRRITABLE BOWEL SYNDROME
     Dosage: 145 MICROGRAM
     Dates: start: 20160410, end: 2016
  3. METOPROLOL. [Concomitant]
     Active Substance: METOPROLOL
     Indication: HYPERTENSION
     Dosage: 50 MG IN THE MORNING
  4. UNSPECIFIED CHOLESTEROL MEDICATION [Concomitant]
     Indication: BLOOD CHOLESTEROL
  5. LORAZEPAM. [Concomitant]
     Active Substance: LORAZEPAM
  6. TRIAMTERENE. [Concomitant]
     Active Substance: TRIAMTERENE
  7. UNSPECIFIED BLOOD PRESSURE MEDICATION [Concomitant]
     Active Substance: UNSPECIFIED INGREDIENT
     Indication: BLOOD PRESSURE MEASUREMENT

REACTIONS (23)
  - Hypertension [Unknown]
  - Decreased appetite [Recovering/Resolving]
  - Asthenia [Not Recovered/Not Resolved]
  - Heart rate increased [Recovering/Resolving]
  - Blood sodium decreased [Unknown]
  - Chest discomfort [Recovering/Resolving]
  - Headache [Recovering/Resolving]
  - Tremor [Unknown]
  - Anxiety [Not Recovered/Not Resolved]
  - Dyspnoea [Recovering/Resolving]
  - Chromaturia [Not Recovered/Not Resolved]
  - Dyspnoea [Unknown]
  - Diarrhoea [Recovering/Resolving]
  - Palpitations [Not Recovered/Not Resolved]
  - Tremor [Not Recovered/Not Resolved]
  - Hypertension [Unknown]
  - Frequent bowel movements [Recovered/Resolved]
  - Blood electrolytes abnormal [Unknown]
  - Off label use [Recovered/Resolved]
  - Hypertension [Unknown]
  - Blood potassium decreased [Unknown]
  - Heart rate increased [Unknown]
  - Dehydration [Unknown]

NARRATIVE: CASE EVENT DATE: 2016
